FAERS Safety Report 8166433-5 (Version None)
Quarter: 2012Q1

REPORT INFORMATION
  Report Type: 
  Country: None (occurrence: None)
  Receive Date: 20120227
  Receipt Date: 20110830
  Transmission Date: 20120608
  Serious: No
  Sender: FDA-Public Use
  Company Number: US-MYLANLABS-2011S1016001

PATIENT
  Age: 16 Year
  Sex: Male
  Weight: 89.36 kg

DRUGS (1)
  1. AMNESTEEM [Suspect]
     Indication: ACNE CYSTIC
     Route: 048
     Dates: start: 20110412, end: 20110501

REACTIONS (3)
  - MYALGIA [None]
  - FATIGUE [None]
  - ARTHRALGIA [None]
